FAERS Safety Report 24559768 (Version 1)
Quarter: 2024Q4

REPORT INFORMATION
  Report Type: Report from Study
  Country: IL (occurrence: IL)
  Receive Date: 20241029
  Receipt Date: 20241029
  Transmission Date: 20250115
  Serious: Yes (Other)
  Sender: USV PRIVATE LIMITED
  Company Number: IL-USV-002974

PATIENT

DRUGS (1)
  1. ZOLEDRONIC ACID [Suspect]
     Active Substance: ZOLEDRONIC ACID
     Indication: Osteoporosis

REACTIONS (3)
  - Chronic kidney disease [Unknown]
  - Hypocalcaemia [Unknown]
  - Pyrexia [Unknown]
